FAERS Safety Report 7959471-6 (Version None)
Quarter: 2011Q4

REPORT INFORMATION
  Report Type: 
  Country: None (occurrence: None)
  Receive Date: 20111206
  Receipt Date: 20111130
  Transmission Date: 20120403
  Serious: No
  Sender: FDA-Public Use
  Company Number: US-PFIZER INC-2011292614

PATIENT
  Sex: Male

DRUGS (1)
  1. DIFLUCAN [Suspect]
     Dosage: UNK

REACTIONS (2)
  - EXTRASYSTOLES [None]
  - ABDOMINAL DISCOMFORT [None]
